FAERS Safety Report 15584340 (Version 1)
Quarter: 2018Q4

REPORT INFORMATION
  Report Type: Report from Study
  Country: BD (occurrence: BD)
  Receive Date: 20181104
  Receipt Date: 20181104
  Transmission Date: 20190205
  Serious: Yes (Death)
  Sender: FDA-Public Use
  Company Number: PHHY2018BD126454

PATIENT
  Sex: Male
  Weight: 60 kg

DRUGS (2)
  1. ZOMETA [Suspect]
     Active Substance: ZOLEDRONIC ACID
     Indication: LUNG NEOPLASM MALIGNANT
  2. ZOMETA [Suspect]
     Active Substance: ZOLEDRONIC ACID
     Indication: METASTASES TO BONE
     Dosage: 4 MG, QD
     Route: 065
     Dates: start: 20180913

REACTIONS (3)
  - Death [Fatal]
  - Dyspnoea [Unknown]
  - Constipation [Unknown]

NARRATIVE: CASE EVENT DATE: 20180929
